FAERS Safety Report 25825429 (Version 1)
Quarter: 2025Q3

REPORT INFORMATION
  Report Type: Report from Study
  Country: US (occurrence: US)
  Receive Date: 20250919
  Receipt Date: 20250919
  Transmission Date: 20251021
  Serious: Yes (Other)
  Sender: ALEXION PHARMACEUTICALS
  Company Number: US-AstraZeneca-CH-00953165A

PATIENT
  Sex: Male

DRUGS (1)
  1. BUDESONIDE\FORMOTEROL\GLYCOPYRRONIUM [Suspect]
     Active Substance: BUDESONIDE\FORMOTEROL\GLYCOPYRRONIUM
     Route: 065

REACTIONS (9)
  - Leukopenia [Unknown]
  - Deafness [Unknown]
  - Seasonal allergy [Unknown]
  - Type V hyperlipidaemia [Unknown]
  - Tinnitus [Unknown]
  - Normocytic anaemia [Unknown]
  - Dyspnoea [Unknown]
  - Pain [Unknown]
  - Osteoarthritis [Unknown]
